FAERS Safety Report 4540805-X (Version None)
Quarter: 2004Q4

REPORT INFORMATION
  Report Type: 
  Country: None (occurrence: None)
  Receive Date: 20041229
  Receipt Date: 20041215
  Transmission Date: 20050328
  Serious: Yes (Hospitalization)
  Sender: FDA-Public Use
  Company Number: GB-GLAXOSMITHKLINE-B0362421A

PATIENT
  Age: 55 Year
  Sex: Male

DRUGS (17)
  1. ACETAMINOPHEN [Suspect]
  2. LOSARTAN [Suspect]
     Indication: HYPERTENSION
     Dosage: 50MG PER DAY
     Route: 048
  3. ATORVASTATIN [Suspect]
  4. SIMVASTATIN [Suspect]
  5. ALLOPURINOL [Concomitant]
  6. ASPIRIN [Concomitant]
     Route: 048
  7. DIGOXIN [Concomitant]
  8. IRON SULPHATE [Concomitant]
  9. FRUSEMIDE [Concomitant]
  10. NOVORAPID [Concomitant]
  11. INSULIN GLARGINE [Concomitant]
  12. LOPERAMIDE HCL [Concomitant]
  13. NICORANDIL [Concomitant]
  14. PREDNISOLONE [Concomitant]
  15. SPIRONOLACTONE [Concomitant]
  16. TEMAZEPAM [Concomitant]
     Dosage: 10MG AS REQUIRED
  17. BISOPROLOL FUMARATE [Concomitant]

REACTIONS (7)
  - AXILLARY VEIN THROMBOSIS [None]
  - BLOOD GLUCOSE DECREASED [None]
  - DIARRHOEA [None]
  - HENOCH-SCHONLEIN PURPURA [None]
  - HEPATIC FUNCTION ABNORMAL [None]
  - VOMITING [None]
  - WEIGHT DECREASED [None]
